FAERS Safety Report 4659143-X (Version None)
Quarter: 2005Q2

REPORT INFORMATION
  Report Type: 
  Country: None (occurrence: None)
  Receive Date: 20050502
  Receipt Date: 20050106
  Transmission Date: 20051028
  Serious: No
  Sender: FDA-Public Use
  Company Number: 200419570US

PATIENT
  Age: 48 Year
  Sex: Male

DRUGS (5)
  1. KETEK [Suspect]
     Indication: SINUSITIS
     Dosage: QD PO
     Route: 048
     Dates: start: 20041207, end: 20041211
  2. CANDESARTAN CILEXETIL (ATACAND) [Concomitant]
  3. DIURETIC NOS [Concomitant]
  4. BUDESONIDE (RHINOCORT) [Concomitant]
  5. GUAIFENESIN, PHENYLPROPANOLAMINE HYDROCHLORIDE (PROFEN II) [Concomitant]

REACTIONS (2)
  - HEADACHE [None]
  - OCULAR HYPERAEMIA [None]
